FAERS Safety Report 9136427 (Version 3)
Quarter: 2013Q2

REPORT INFORMATION
  Report Type: Spontaneous
  Country: FR (occurrence: FR)
  Receive Date: 20130304
  Receipt Date: 20130510
  Transmission Date: 20140414
  Serious: Yes (Death, Life-Threatening)
  Sender: FDA-Public Use
  Company Number: FR-ASTRAZENECA-2013SE14046

PATIENT
  Age: 19998 Day
  Sex: Male

DRUGS (4)
  1. CARBOCAINE [Suspect]
     Indication: LOCAL ANAESTHESIA
     Dosage: 15 ML (300 MG) ONCE/SINGLE ADMINISTRATION
     Route: 050
     Dates: start: 20130113, end: 20130113
  2. CARBOCAINE [Suspect]
     Indication: NERVE BLOCK
     Dosage: 15 ML (300 MG) ONCE/SINGLE ADMINISTRATION
     Route: 050
     Dates: start: 20130113, end: 20130113
  3. AUGMENTIN [Suspect]
     Indication: ANTIBIOTIC PROPHYLAXIS
     Dosage: ONCE/SINGLE ADMINISTRATION
     Route: 042
     Dates: start: 20130113, end: 20130113
  4. AMPICILLIN [Concomitant]

REACTIONS (5)
  - Anaphylactic shock [Fatal]
  - Ventricular fibrillation [Fatal]
  - Brain death [Unknown]
  - Cardio-respiratory arrest [Recovered/Resolved with Sequelae]
  - Dysgeusia [Unknown]
